FAERS Safety Report 13234229 (Version 1)
Quarter: 2017Q1

REPORT INFORMATION
  Report Type: Spontaneous
  Country: TN (occurrence: TN)
  Receive Date: 20170215
  Receipt Date: 20170215
  Transmission Date: 20170428
  Serious: Yes (Hospitalization, Other)
  Sender: FDA-Public Use
  Company Number: TN-UCBSA-2017005564

PATIENT
  Age: 34 Year
  Sex: Female

DRUGS (6)
  1. FUSIDIC ACID [Concomitant]
     Active Substance: FUSIDIC ACID
     Indication: PRURITUS
     Dosage: UNK
  2. FUSIDIC ACID [Concomitant]
     Active Substance: FUSIDIC ACID
     Indication: SKIN LESION
  3. METHOTREXATE. [Concomitant]
     Active Substance: METHOTREXATE
     Indication: PRODUCT USED FOR UNKNOWN INDICATION
     Dosage: UNK
  4. CIMZIA [Suspect]
     Active Substance: CERTOLIZUMAB PEGOL
     Dosage: 400 MG, EV 2 WEEKS(QOW)
     Route: 058
     Dates: start: 201612, end: 20170110
  5. MEDROL [Concomitant]
     Active Substance: METHYLPREDNISOLONE
     Indication: PRODUCT USED FOR UNKNOWN INDICATION
     Dosage: UNK
  6. CIMZIA [Suspect]
     Active Substance: CERTOLIZUMAB PEGOL
     Indication: RHEUMATOID ARTHRITIS
     Dosage: 400 MG, EV 2 WEEKS(QOW)
     Route: 058
     Dates: start: 20160507, end: 201608

REACTIONS (6)
  - Skin lesion [Unknown]
  - Rash papular [Unknown]
  - Blister [Unknown]
  - Scab [Unknown]
  - Skin plaque [Unknown]
  - Pruritus [Unknown]

NARRATIVE: CASE EVENT DATE: 201609
